FAERS Safety Report 8327471-2 (Version None)
Quarter: 2012Q2

REPORT INFORMATION
  Report Type: 
  Country: None (occurrence: None)
  Receive Date: 20120502
  Receipt Date: 20120423
  Transmission Date: 20120825
  Serious: Yes (Hospitalization)
  Sender: FDA-Public Use
  Company Number: US-BAYER-2011-097588

PATIENT
  Age: 34 Year
  Sex: Female

DRUGS (1)
  1. YASMIN [Suspect]
     Dosage: UNK
     Dates: start: 20060301, end: 20060401

REACTIONS (6)
  - PULMONARY EMBOLISM [None]
  - PSYCHOLOGICAL TRAUMA [None]
  - DEEP VEIN THROMBOSIS [None]
  - PAIN [None]
  - EMOTIONAL DISTRESS [None]
  - ANXIETY [None]
